FAERS Safety Report 25686862 (Version 2)
Quarter: 2025Q4

REPORT INFORMATION
  Report Type: Spontaneous
  Country: EU (occurrence: EU)
  Receive Date: 20250816
  Receipt Date: 20251022
  Transmission Date: 20260117
  Serious: Yes (Hospitalization, Other)
  Sender: AUROBINDO
  Company Number: EU-LESVI-2022005250

PATIENT
  Age: 2 Month
  Sex: Female

DRUGS (1)
  1. ACETAMINOPHEN [Suspect]
     Active Substance: ACETAMINOPHEN
     Indication: Product used for unknown indication
     Dosage: THERAPEUTIC DOSE (12 DROPS OF THE 100 MG/ML SOLUTION, 48 MG; 12.6 MG/KG)
     Route: 065

REACTIONS (2)
  - Toxicity to various agents [Recovering/Resolving]
  - Liver injury [Recovered/Resolved]
